FAERS Safety Report 9400234 (Version 4)
Quarter: 2013Q4

REPORT INFORMATION
  Report Type: Spontaneous
  Country: US (occurrence: None)
  Receive Date: 20130606
  Receipt Date: 20131224
  Transmission Date: 20140711
  Serious: Yes (Hospitalization, Other)
  Sender: FDA-Public Use
  Company Number: 2012US000880

PATIENT
  Age: 46 Year
  Sex: Female
  Weight: 69.6 kg

DRUGS (8)
  1. PONATINIB [Suspect]
     Indication: CHRONIC MYELOID LEUKAEMIA
     Route: 048
     Dates: start: 20121009, end: 20121016
  2. ALLOPURINOL [Concomitant]
  3. ALPRAZOLAM (ALPRAZOLAM) [Concomitant]
  4. ATROVENT (IPRATROPIUM BROMIDE) [Concomitant]
  5. CALCITROL (CALCIUM CARBONATE, ERGOCALCIFEROL, RETINOL) [Concomitant]
  6. LEVOTHYROXINE (LEVOTHYROXINE SODIUM) [Concomitant]
  7. PANTOPRAZOLE (PANTOPRAZOLE) [Concomitant]
  8. VICODIN (HYDROCODONE BITARTRATE, PARACETAMOL) [Concomitant]

REACTIONS (20)
  - Pleural effusion [None]
  - Mental status changes [None]
  - Renal failure [None]
  - Portal vein thrombosis [None]
  - Splenic infarction [None]
  - Haemoglobin decreased [None]
  - Platelet count decreased [None]
  - Splenomegaly [None]
  - Headache [None]
  - Muscular weakness [None]
  - Meningitis viral [None]
  - Memory impairment [None]
  - Asthenia [None]
  - Pyrexia [None]
  - White blood cell count increased [None]
  - Blood chloride increased [None]
  - Blood creatine phosphokinase increased [None]
  - Prothrombin time prolonged [None]
  - Activated partial thromboplastin time prolonged [None]
  - Fibrin D dimer increased [None]
